FAERS Safety Report 21667799 (Version 1)
Quarter: 2022Q4

REPORT INFORMATION
  Report Type: Report from Study
  Country: US (occurrence: US)
  Receive Date: 20221201
  Receipt Date: 20221201
  Transmission Date: 20230113
  Serious: No
  Sender: FDA-Public Use
  Company Number: US-ABBVIE-4186468

PATIENT
  Sex: Female

DRUGS (13)
  1. SKYRIZI [Suspect]
     Active Substance: RISANKIZUMAB-RZAA
     Indication: Psoriasis
     Route: 058
  2. ATORVASTATIN CALCIUM [Concomitant]
     Active Substance: ATORVASTATIN CALCIUM
     Indication: Product used for unknown indication
  3. FLONASE ALLERGY RELIEF [Concomitant]
     Active Substance: FLUTICASONE PROPIONATE
     Indication: Product used for unknown indication
  4. VITAMIN A 2400 MCG CAPSULE [Concomitant]
     Indication: Product used for unknown indication
  5. VITAMIN C 1000 MG TABLET [Concomitant]
     Indication: Product used for unknown indication
  6. WELLBUTRIN SR 150 MG TAB SR 12H [Concomitant]
     Indication: Product used for unknown indication
  7. VITAMIN D2 50 MCG CAPSULE [Concomitant]
     Indication: Product used for unknown indication
  8. ZYRTEC [Concomitant]
     Active Substance: CETIRIZINE HYDROCHLORIDE
     Indication: Product used for unknown indication
  9. CALCIUM [Concomitant]
     Active Substance: CALCIUM
     Indication: Product used for unknown indication
  10. AMLODIPINE BESYLATE [Concomitant]
     Active Substance: AMLODIPINE BESYLATE
     Indication: Product used for unknown indication
  11. QUERCETIN 500 MG CAPSULE [Concomitant]
     Indication: Product used for unknown indication
  12. VITAMIN E 1000 UNIT CAPSULE [Concomitant]
     Indication: Product used for unknown indication
  13. COVID-19 VACCINE NOS [Suspect]
     Active Substance: COVID-19 VACCINE NOS
     Indication: COVID-19 immunisation
     Route: 030
     Dates: start: 202210, end: 202210

REACTIONS (1)
  - Illness [Unknown]
